FAERS Safety Report 13037200 (Version 2)
Quarter: 2016Q4

REPORT INFORMATION
  Report Type: Spontaneous
  Country: US (occurrence: US)
  Receive Date: 20161216
  Receipt Date: 20161220
  Transmission Date: 20170207
  Serious: Yes (Other)
  Sender: FDA-Public Use
  Company Number: US-PFIZER INC-2016575912

PATIENT
  Age: 15 Year
  Sex: Male

DRUGS (9)
  1. TERBUTALINE [Concomitant]
     Active Substance: TERBUTALINE
     Indication: STATUS ASTHMATICUS
     Dosage: UNK
  2. NOREPINEPHRINE [Concomitant]
     Active Substance: NOREPINEPHRINE\NOREPINEPHRINE BITARTRATE
     Indication: STATUS ASTHMATICUS
     Dosage: UNK
  3. MAGNESIUM [Concomitant]
     Active Substance: MAGNESIUM
     Indication: STATUS ASTHMATICUS
     Dosage: UNK
  4. EPINEPHRINE. [Suspect]
     Active Substance: EPINEPHRINE
     Indication: STATUS ASTHMATICUS
     Dosage: UNK
  5. KETAMINE HCL [Suspect]
     Active Substance: KETAMINE HYDROCHLORIDE
     Indication: STATUS ASTHMATICUS
     Dosage: UNK
  6. DUONEBS [Concomitant]
     Indication: STATUS ASTHMATICUS
     Dosage: UNK
  7. MILRINONE [Concomitant]
     Active Substance: MILRINONE
     Indication: STATUS ASTHMATICUS
     Dosage: UNK
  8. ALBUTEROL. [Concomitant]
     Active Substance: ALBUTEROL
     Indication: STATUS ASTHMATICUS
     Dosage: UNK
  9. SOLU-MEDROL [Concomitant]
     Active Substance: METHYLPREDNISOLONE SODIUM SUCCINATE
     Indication: STATUS ASTHMATICUS
     Dosage: UNK

REACTIONS (2)
  - Hypertension [Unknown]
  - Electrocardiogram ST segment depression [Unknown]
